FAERS Safety Report 9480405 (Version 1)
Quarter: 2013Q3

REPORT INFORMATION
  Report Type: Spontaneous
  Country: US (occurrence: US)
  Receive Date: 20130828
  Receipt Date: 20130828
  Transmission Date: 20140515
  Serious: Yes (Hospitalization, Other)
  Sender: FDA-Public Use
  Company Number: US-AMGEN-KDL102051

PATIENT
  Age: 61 Year
  Sex: 0

DRUGS (4)
  1. ENBREL [Suspect]
     Indication: PSORIATIC ARTHROPATHY
     Dosage: 25 MG, 2 TIMES/WK
     Route: 065
     Dates: start: 200001
  2. ESCITALOPRAM [Concomitant]
     Dosage: UNK UNK, UNK
  3. LOSARTAN POTASSIUM [Concomitant]
     Dosage: UNK UNK, UNK
  4. LETROZOLE [Concomitant]
     Dosage: UNK UNK, UNK

REACTIONS (2)
  - Atrial fibrillation [Unknown]
  - Breast cancer stage II [Recovered/Resolved]
